FAERS Safety Report 9964353 (Version 2)
Quarter: 2015Q2

REPORT INFORMATION
  Report Type: Report from Study
  Country: JP (occurrence: JP)
  Receive Date: 20140305
  Receipt Date: 20150408
  Transmission Date: 20150821
  Serious: Yes (Other)
  Sender: FDA-Public Use
  Company Number: JP-GLAXOSMITHKLINE-B0958038A

PATIENT
  Age: 85 Year
  Sex: Female

DRUGS (6)
  1. DIOVAN [Concomitant]
     Active Substance: VALSARTAN
     Indication: HYPERTENSION
     Route: 048
  2. PLETAAL [Concomitant]
     Active Substance: CILOSTAZOL
     Indication: CEREBRAL INFARCTION
     Route: 048
  3. AMLODIPINE [Concomitant]
     Active Substance: AMLODIPINE BESYLATE
     Indication: HYPERTENSION
     Route: 048
  4. ASPARA-CA [Concomitant]
     Active Substance: CALCIUM ASPARTATE
     Indication: OSTEOPOROSIS
     Route: 048
  5. FONDAPARINUX SODIUM. [Suspect]
     Active Substance: FONDAPARINUX SODIUM
     Indication: THROMBOSIS PROPHYLAXIS
     Dosage: 1.5 MG, QD
     Route: 058
     Dates: start: 20100211, end: 20100212
  6. FOSAMAC 35MG [Concomitant]
     Indication: OSTEOPOROSIS
     Route: 048

REACTIONS (3)
  - Renal impairment [Recovering/Resolving]
  - Haemorrhage [Unknown]
  - Haemoglobin decreased [Recovering/Resolving]

NARRATIVE: CASE EVENT DATE: 20100211
